FAERS Safety Report 5078702-6 (Version None)
Quarter: 2006Q3

REPORT INFORMATION
  Report Type: 
  Country: None (occurrence: None)
  Receive Date: 20060808
  Receipt Date: 20060731
  Transmission Date: 20061208
  Serious: Yes (Hospitalization, Other)
  Sender: FDA-Public Use
  Company Number: 2006SP002792

PATIENT
  Age: 26 Year
  Sex: Male

DRUGS (6)
  1. XOPENEX [Suspect]
     Indication: ASTHMA
     Dosage: 0.63 MG/3ML; BID; INHALATION
     Route: 055
     Dates: start: 20000101
  2. XOPENEX [Suspect]
     Indication: ASTHMA
     Dosage: 0.63 MG/3ML; BID; INHALATION
     Route: 055
     Dates: start: 20020101
  3. FLOVENT [Concomitant]
  4. PULMICORT [Concomitant]
  5. CROMOLYN SODIUM [Concomitant]
  6. NASAL SALINE [Concomitant]

REACTIONS (10)
  - CONDITION AGGRAVATED [None]
  - EPISTAXIS [None]
  - GRAND MAL CONVULSION [None]
  - LUNG DISORDER [None]
  - LUNG INFECTION [None]
  - PNEUMONIA [None]
  - SCOLIOSIS SURGERY [None]
  - SERRATIA INFECTION [None]
  - STRESS [None]
  - TONIC CONVULSION [None]
